FAERS Safety Report 7168228-8 (Version None)
Quarter: 2010Q4

REPORT INFORMATION
  Report Type: 
  Country: None (occurrence: None)
  Receive Date: 20101216
  Receipt Date: 20101210
  Transmission Date: 20110411
  Serious: Yes (Death, Other)
  Sender: FDA-Public Use
  Company Number: US-BAXTER-2010BH029806

PATIENT
  Age: 27 Year
  Sex: Male

DRUGS (1)
  1. DIANEAL [Suspect]
     Indication: PERITONEAL DIALYSIS
     Route: 033
     Dates: end: 20101128

REACTIONS (5)
  - DEATH [None]
  - HAEMORRHAGE [None]
  - RENAL FAILURE [None]
  - RESPIRATORY ARREST [None]
  - THROMBOSIS [None]
